FAERS Safety Report 5731546-1 (Version None)
Quarter: 2008Q2

REPORT INFORMATION
  Report Type: 
  Country: None (occurrence: None)
  Receive Date: 20080506
  Receipt Date: 20080428
  Transmission Date: 20081010
  Serious: Yes (Other)
  Sender: FDA-Public Use
  Company Number: PERC20080040

PATIENT
  Age: 49 Year
  Sex: Male

DRUGS (5)
  1. PERCOCET [Suspect]
     Indication: BACK PAIN
     Dosage: PER ORAL
     Route: 048
  2. FENTANYL TRANSDERMAL SYSTEM [Suspect]
     Indication: BACK PAIN
     Dosage: 25 MCG, 1 PATCH Q   3 DAYS, TRANSDERMAL
     Route: 062
  3. FENTANYL TRANSDERMAL SYSTEM [Suspect]
     Indication: BACK PAIN
     Dosage: 100 MCG, 1 PATCH Q 3 DAYS, TRANSDERMAL
     Route: 062
  4. BACLOFEN [Suspect]
     Indication: MUSCLE SPASMS
     Dosage: 20 MG, 1 TABLET TID, PER ORAL
     Route: 048
  5. IBUPROFEN [Concomitant]

REACTIONS (5)
  - APPLICATION SITE IRRITATION [None]
  - DEVICE FAILURE [None]
  - DRUG INEFFECTIVE [None]
  - INCORRECT DOSE ADMINISTERED [None]
  - PAIN [None]
